FAERS Safety Report 18187115 (Version 1)
Quarter: 2020Q3

REPORT INFORMATION
  Report Type: Spontaneous
  Country: US (occurrence: US)
  Receive Date: 20200824
  Receipt Date: 20200824
  Transmission Date: 20201103
  Serious: No
  Sender: FDA-Public Use
  Company Number: US-MYLANLABS-2020M1071995

PATIENT
  Sex: Female

DRUGS (1)
  1. POTASSIUM CHLORIDE EXTENDED?RELEASE TABLETS, USP [Suspect]
     Active Substance: POTASSIUM CHLORIDE
     Indication: PRODUCT USED FOR UNKNOWN INDICATION
     Dosage: UNK, AM, UNK UNK, QD FOR ABOUT 3 TO 4 MONTHS NOW EVERY MORNING

REACTIONS (2)
  - Product solubility abnormal [Unknown]
  - Product residue present [Unknown]

NARRATIVE: CASE EVENT DATE: 202007
